FAERS Safety Report 12304149 (Version 1)
Quarter: 2016Q2

REPORT INFORMATION
  Report Type: Spontaneous
  Country: US (occurrence: None)
  Receive Date: 20160425
  Receipt Date: 20160425
  Transmission Date: 20160815
  Serious: Yes (Disabling, Other)
  Sender: FDA-Public Use
  Company Number: None

PATIENT
  Age: 46 Year
  Sex: Female
  Weight: 121.56 kg

DRUGS (1)
  1. CIPRO [Suspect]
     Active Substance: CIPROFLOXACIN HYDROCHLORIDE
     Indication: INFECTION PROPHYLAXIS
     Route: 048
     Dates: start: 20150310, end: 20150317

REACTIONS (7)
  - Memory impairment [None]
  - Neuropathy peripheral [None]
  - Tendonitis [None]
  - Cervical spinal stenosis [None]
  - Hepatic function abnormal [None]
  - Tendon rupture [None]
  - Mental disorder [None]
